FAERS Safety Report 26176788 (Version 4)
Quarter: 2025Q4

REPORT INFORMATION
  Report Type: Spontaneous
  Country: US (occurrence: US)
  Receive Date: 20251218
  Receipt Date: 20251221
  Transmission Date: 20260117
  Serious: Yes (Other)
  Sender: SANDOZ
  Company Number: US-SANDOZ-SDZ2025US095631

PATIENT
  Sex: Female

DRUGS (1)
  1. ALBUTEROL SULFATE [Suspect]
     Active Substance: ALBUTEROL SULFATE
     Indication: Product used for unknown indication
     Dosage: UNK (STRENGTH: 90  MCG)

REACTIONS (4)
  - Choking [Unknown]
  - Cough [Unknown]
  - Circumstance or information capable of leading to device use error [Unknown]
  - Product delivery mechanism issue [Unknown]
